FAERS Safety Report 25689805 (Version 2)
Quarter: 2025Q4

REPORT INFORMATION
  Report Type: Spontaneous
  Country: EU (occurrence: EU)
  Receive Date: 20250818
  Receipt Date: 20251022
  Transmission Date: 20260118
  Serious: Yes (Hospitalization, Other)
  Sender: AUROBINDO
  Company Number: EU-AEMPS-1741326

PATIENT
  Age: 67 Year
  Sex: Female

DRUGS (3)
  1. CARBOPLATIN [Interacting]
     Active Substance: CARBOPLATIN
     Indication: Lung adenocarcinoma stage IV
     Dosage: 675 MILLIGRAM, 1 TOTAL
     Route: 042
     Dates: start: 20250324, end: 20250324
  2. PEMETREXED [Interacting]
     Active Substance: PEMETREXED
     Indication: Lung adenocarcinoma stage IV
     Dosage: 905 MILLIGRAM, 1 TOTAL
     Route: 042
     Dates: start: 20250324, end: 20250324
  3. LIBTAYO [Interacting]
     Active Substance: CEMIPLIMAB-RWLC
     Indication: Lung adenocarcinoma stage IV
     Dosage: 350 MILLIGRAM, 1 TOTAL
     Route: 042
     Dates: start: 20250324, end: 20250324

REACTIONS (1)
  - Pancytopenia [Recovered/Resolved]

NARRATIVE: CASE EVENT DATE: 20250331
